FAERS Safety Report 13937969 (Version 1)
Quarter: 2017Q3

REPORT INFORMATION
  Report Type: Other
  Country: FI (occurrence: FI)
  Receive Date: 20170905
  Receipt Date: 20170905
  Transmission Date: 20171127
  Serious: Yes (Other)
  Sender: FDA-Public Use
  Company Number: FI-CELLTRION HEALTHCARE JAPAN K.K.-2017FI011713

PATIENT

DRUGS (8)
  1. PANACOD [Concomitant]
     Active Substance: ACETAMINOPHEN\CODEINE PHOSPHATE
  2. INFLECTRA [Suspect]
     Active Substance: INFLIXIMAB-DYYB
     Indication: PRODUCT USED FOR UNKNOWN INDICATION
     Dosage: 200 MG, UNK
     Route: 042
     Dates: start: 201611, end: 20170821
  3. SOMAC [Concomitant]
     Active Substance: PANTOPRAZOLE SODIUM
  4. BURANA [Concomitant]
     Active Substance: IBUPROFEN
  5. TREXAN                             /00113801/ [Concomitant]
     Active Substance: METHOTREXATE SODIUM
  6. DESLORATADIN [Concomitant]
     Active Substance: DESLORATADINE
  7. ARCOXIA [Concomitant]
     Active Substance: ETORICOXIB
  8. PANADOL [Concomitant]
     Active Substance: ACETAMINOPHEN
     Dosage: 200 MG, UNK
     Route: 042
     Dates: start: 201611, end: 20170821

REACTIONS (2)
  - Erythema [Recovered/Resolved]
  - Throat irritation [Recovered/Resolved]

NARRATIVE: CASE EVENT DATE: 20170821
